FAERS Safety Report 5494612-4 (Version None)
Quarter: 2007Q4

REPORT INFORMATION
  Report Type: 
  Country: None (occurrence: None)
  Receive Date: 20071015
  Receipt Date: 20070827
  Transmission Date: 20080405
  Serious: No
  Sender: FDA-Public Use
  Company Number: 2006SP003680

PATIENT
  Age: 40 Year
  Sex: Male
  Weight: 95.2554 kg

DRUGS (2)
  1. LUNESTA [Suspect]
     Indication: MIDDLE INSOMNIA
     Dosage: 3 MG; HS; ORAL; 2 MG; HS; ORAL
     Route: 048
     Dates: start: 20060101, end: 20060101
  2. LUNESTA [Suspect]
     Indication: MIDDLE INSOMNIA
     Dosage: 3 MG; HS; ORAL; 2 MG; HS; ORAL
     Route: 048
     Dates: start: 20060101, end: 20070822

REACTIONS (5)
  - DRUG INEFFECTIVE [None]
  - DYSGEUSIA [None]
  - INITIAL INSOMNIA [None]
  - REBOUND EFFECT [None]
  - SOMNOLENCE [None]
